FAERS Safety Report 6094867-1 (Version None)
Quarter: 2009Q1

REPORT INFORMATION
  Report Type: 
  Country: None (occurrence: None)
  Receive Date: 20090227
  Receipt Date: 20090220
  Transmission Date: 20090719
  Serious: Yes (Other)
  Sender: FDA-Public Use
  Company Number: AU-JNJFOC-20090204651

PATIENT
  Sex: Female
  Weight: 129 kg

DRUGS (1)
  1. RISPERIDONE [Suspect]
     Indication: SCHIZOAFFECTIVE DISORDER
     Route: 065

REACTIONS (3)
  - BENIGN INTRACRANIAL HYPERTENSION [None]
  - BLINDNESS [None]
  - BLOOD PROLACTIN INCREASED [None]
